FAERS Safety Report 4808515-9 (Version None)
Quarter: 2005Q4

REPORT INFORMATION
  Report Type: 
  Country: None (occurrence: None)
  Receive Date: 20051021
  Receipt Date: 20051021
  Transmission Date: 20060501
  Serious: Yes (Other)
  Sender: FDA-Public Use
  Company Number: None

PATIENT
  Age: 77 Year
  Sex: Male
  Weight: 69.5 kg

DRUGS (1)
  1. PERCOCET [Suspect]

REACTIONS (1)
  - SOMNOLENCE [None]
